FAERS Safety Report 20535598 (Version 1)
Quarter: 2022Q1

REPORT INFORMATION
  Report Type: Spontaneous
  Country: RU (occurrence: RU)
  Receive Date: 20220302
  Receipt Date: 20220302
  Transmission Date: 20220423
  Serious: Yes (Hospitalization)
  Sender: FDA-Public Use
  Company Number: RU-JNJFOC-20211129099

PATIENT
  Age: 33 Year
  Sex: Male
  Weight: 127 kg

DRUGS (5)
  1. INVEGA [Suspect]
     Active Substance: PALIPERIDONE
     Indication: Schizophrenia
     Dosage: SINGLE DOSE: 0.006MG
     Route: 048
     Dates: start: 20210325, end: 20210409
  2. PAROXETINE [Concomitant]
     Active Substance: PAROXETINE
     Indication: Schizophrenia
     Route: 048
     Dates: start: 2012
  3. CARBAMAZEPINE [Concomitant]
     Active Substance: CARBAMAZEPINE
     Indication: Schizophrenia
     Dosage: 400 MG IN THE MORNING AND IN THE EVENING
     Route: 048
     Dates: start: 2013
  4. TRIHEXYPHENIDYL [Concomitant]
     Active Substance: TRIHEXYPHENIDYL
     Indication: Schizophrenia
     Route: 048
     Dates: start: 2009
  5. AMISULPRIDE [Concomitant]
     Active Substance: AMISULPRIDE
     Indication: Schizophrenia
     Dosage: 2 TIMES IN THE MORNING AND IN THE EVENING
     Route: 048
     Dates: start: 2010

REACTIONS (4)
  - Thinking abnormal [Recovered/Resolved]
  - Sensory disturbance [Recovered/Resolved]
  - Dizziness [Recovered/Resolved]
  - Blood pressure decreased [Recovered/Resolved]

NARRATIVE: CASE EVENT DATE: 20210329
